FAERS Safety Report 7494093-5 (Version None)
Quarter: 2011Q2

REPORT INFORMATION
  Report Type: 
  Country: None (occurrence: None)
  Receive Date: 20110520
  Receipt Date: 20110513
  Transmission Date: 20111010
  Serious: Yes (Hospitalization)
  Sender: FDA-Public Use
  Company Number: US-ALEXION-A201100169

PATIENT
  Sex: Female

DRUGS (22)
  1. GLUCOPHAGE [Concomitant]
     Indication: DIABETES MELLITUS
     Dosage: 500 MG, BID ( BEFORE BREAKFAST AND DINNER)
     Route: 048
  2. KLOR-CON [Concomitant]
     Dosage: 20 MEQ, QD
     Route: 048
  3. PRILOSEC [Concomitant]
     Dosage: 20 MG, QD BEFORE BREAKFAST
     Route: 048
  4. SOLIRIS [Suspect]
     Indication: PAROXYSMAL NOCTURNAL HAEMOGLOBINURIA
     Dosage: 900 MG, Q2W
     Route: 042
     Dates: start: 20090316
  5. ALDACTONE [Concomitant]
     Dosage: 25 MG, QD
     Route: 048
  6. NOVOLOG [Concomitant]
     Dosage: 12 IU, TID WITH MEALS
     Route: 058
  7. NITROSTAT [Concomitant]
     Dosage: UNK
  8. AMIODARONE HCL [Concomitant]
     Dosage: 200 MG, QD
     Route: 048
  9. COUMADIN [Concomitant]
     Dosage: 5 MG, DOSE ADJUSTED TO MAINTAIN INR 2-3
     Route: 048
  10. NORVASC [Concomitant]
     Dosage: 5 MG, QD
     Route: 048
  11. LEXAPRO [Concomitant]
     Dosage: 10 MG, QD
     Route: 048
  12. IMDUR [Concomitant]
     Dosage: 30 MG, QD
     Route: 048
  13. MAGNESIUM OXIDE [Concomitant]
     Dosage: 400 MG, QD
     Route: 048
  14. LISINOPRIL [Concomitant]
     Dosage: 20 MG, QD
     Route: 048
  15. ROXICODONE [Concomitant]
     Indication: PAIN
     Dosage: 5 MG, PRN Q4HOURS
     Route: 048
  16. ULTRAM [Concomitant]
     Indication: PAIN
     Dosage: 50 MG, PRN Q6HOURS
     Route: 048
  17. FOLATE [Concomitant]
     Dosage: 1 MG, QD
     Route: 048
  18. LOPRESSOR [Concomitant]
     Dosage: 25 MG, BID
     Route: 048
  19. FERROUS SULFATE TAB [Concomitant]
     Dosage: 325 MG, TID
     Route: 048
  20. ENDUR-ACIN [Concomitant]
     Dosage: UNK
  21. SODIUM CHLORIDE [Concomitant]
     Dosage: Q1 HOUR, PRN
     Route: 045
  22. LANTUS [Concomitant]
     Dosage: 50 IU, QD AT BEDTIME
     Route: 058

REACTIONS (2)
  - ARTHRALGIA [None]
  - RHEUMATOID ARTHRITIS [None]
